FAERS Safety Report 11238439 (Version 1)
Quarter: 2015Q3

REPORT INFORMATION
  Report Type: Spontaneous
  Country: CA (occurrence: CA)
  Receive Date: 20150705
  Receipt Date: 20150705
  Transmission Date: 20151125
  Serious: Yes (Hospitalization, Disabling, Other)
  Sender: FDA-Public Use
  Company Number: CA-TEVA-575213ACC

PATIENT
  Age: 83 Year
  Sex: Female
  Weight: 64 kg

DRUGS (5)
  1. NOVO-RISEDRONATE [Suspect]
     Active Substance: RISEDRONATE SODIUM
     Indication: OSTEOPOROSIS
     Dosage: 35 MILLIGRAM DAILY;
     Route: 048
  2. LEVOTHYROXINE. [Concomitant]
     Active Substance: LEVOTHYROXINE
     Route: 065
  3. OMEPRAZOLE. [Concomitant]
     Active Substance: OMEPRAZOLE
     Route: 065
  4. NAPROXEN. [Concomitant]
     Active Substance: NAPROXEN
     Route: 065
  5. ROSUVASTATIN [Concomitant]
     Active Substance: ROSUVASTATIN
     Route: 065

REACTIONS (2)
  - Femur fracture [Unknown]
  - Stress fracture [Unknown]
